FAERS Safety Report 6144501-7 (Version None)
Quarter: 2009Q2

REPORT INFORMATION
  Report Type: 
  Country: None (occurrence: None)
  Receive Date: 20090406
  Receipt Date: 20090325
  Transmission Date: 20091009
  Serious: Yes (Other)
  Sender: FDA-Public Use
  Company Number: US-ROCHE-616353

PATIENT
  Age: 58 Year
  Sex: Male

DRUGS (6)
  1. CELLCEPT [Suspect]
     Dosage: OTHER INDICATION: PROPHYLAXIS, PANCREATIC TRANSPLANT REJECTION
     Route: 065
     Dates: start: 19980101
  2. PROGRAF [Concomitant]
  3. ASPIRIN [Concomitant]
  4. INSULIN [Concomitant]
     Dosage: DOSE: 32 UNITS IN MORNING
  5. HUMALOG [Concomitant]
  6. HUMALOG [Concomitant]
     Dosage: SLIDING SCALE

REACTIONS (7)
  - BLOOD CREATININE INCREASED [None]
  - BLOOD GLUCOSE FLUCTUATION [None]
  - JUDGEMENT IMPAIRED [None]
  - MENTAL IMPAIRMENT [None]
  - RENAL FAILURE [None]
  - TRANSPLANT FAILURE [None]
  - WEST NILE VIRAL INFECTION [None]
